FAERS Safety Report 13967803 (Version 15)
Quarter: 2019Q4

REPORT INFORMATION
  Report Type: Report from Study
  Country: NL (occurrence: NL)
  Receive Date: 20170914
  Receipt Date: 20191111
  Transmission Date: 20200122
  Serious: Yes (Hospitalization)
  Sender: FDA-Public Use
  Company Number: NL-ROCHE-1990613

PATIENT
  Age: 69 Year
  Sex: Male
  Weight: 94 kg

DRUGS (16)
  1. COTRIMOXAZOLE [Concomitant]
     Active Substance: SULFAMETHOXAZOLE\TRIMETHOPRIM
     Route: 048
     Dates: start: 20170907
  2. ATENOLOL. [Concomitant]
     Active Substance: ATENOLOL
     Indication: HYPERTENSION
     Route: 048
     Dates: start: 20170515
  3. ATENOLOL. [Concomitant]
     Active Substance: ATENOLOL
     Route: 048
     Dates: start: 20170827, end: 20170827
  4. RABEPRAZOLNATRIUM [Concomitant]
     Indication: PROPHYLAXIS
     Route: 048
     Dates: start: 20170515
  5. COBIMETINIB. [Suspect]
     Active Substance: COBIMETINIB
     Indication: MALIGNANT MELANOMA
     Dosage: THREE 20 MG TABLET?MOST RECENT DOSE PRIOR TO ONSET OF FEVER: 27/JUL/2017?MOST RECENT DOSE 60 MG PRIO
     Route: 048
     Dates: start: 20170719
  6. ATEZOLIZUMAB. [Suspect]
     Active Substance: ATEZOLIZUMAB
     Indication: MALIGNANT MELANOMA
     Dosage: MOST RECENT DOSE OF BLINDED ATEZOLIZUMAB ON 15/AUG/2017
     Route: 042
     Dates: start: 20170815
  7. SIMVASTATINE [Concomitant]
     Active Substance: SIMVASTATIN
     Indication: PROPHYLAXIS
     Route: 048
     Dates: start: 20170515, end: 20170914
  8. ATENOLOL. [Concomitant]
     Active Substance: ATENOLOL
     Route: 048
     Dates: start: 20170828
  9. MACROGOL [Concomitant]
     Active Substance: POLYETHYLENE GLYCOLS
     Indication: CONSTIPATION
     Dosage: WITH ELECRTROLYTES?DOSE: 1,  UNIT: OTHER
     Route: 048
     Dates: start: 20170828
  10. VEMURAFENIB. [Suspect]
     Active Substance: VEMURAFENIB
     Indication: MALIGNANT MELANOMA
     Dosage: DOSE BLINDED?MOST RECENT DOSE PRIOR TO ONSET OF FEVER: 27/JUL/2017; TOTAL NUMBER OF TABLETS: 60?MOST
     Route: 048
     Dates: start: 20170719
  11. RABEPRAZOL [RABEPRAZOLE] [Concomitant]
     Route: 048
     Dates: start: 20170906
  12. FLUTICASONE. [Concomitant]
     Active Substance: FLUTICASONE
     Indication: NODULAR RASH
     Route: 061
     Dates: start: 20170830
  13. INSULIN ASPART [Concomitant]
     Active Substance: INSULIN ASPART
     Indication: DIABETES MELLITUS
     Dosage: DOSE: 300 OTHER
     Route: 058
     Dates: start: 20170913
  14. HYDROCORTISONE. [Concomitant]
     Active Substance: HYDROCORTISONE
     Indication: NODULAR RASH
     Dosage: ROUTE: OTHER; FREQUENCY: UNKNOWN
     Route: 065
     Dates: start: 20170829
  15. VOLTAREN [DICLOFENAC] [Concomitant]
     Active Substance: DICLOFENAC SODIUM
     Indication: HEADACHE
     Dosage: UNKNOWN
     Route: 048
     Dates: start: 201708
  16. TAMSULOSINE [TAMSULOSIN] [Concomitant]
     Active Substance: TAMSULOSIN
     Indication: BENIGN PROSTATIC HYPERPLASIA
     Route: 048
     Dates: start: 20170515, end: 20170914

REACTIONS (5)
  - Hepatitis [Recovered/Resolved]
  - Aspartate aminotransferase increased [Recovered/Resolved]
  - Chorioretinopathy [Recovered/Resolved]
  - Alanine aminotransferase increased [Recovered/Resolved]
  - Pyrexia [Recovered/Resolved]

NARRATIVE: CASE EVENT DATE: 20170810
